FAERS Safety Report 21767557 (Version 3)
Quarter: 2023Q1

REPORT INFORMATION
  Report Type: Spontaneous
  Country: US (occurrence: US)
  Receive Date: 20221222
  Receipt Date: 20230131
  Transmission Date: 20230417
  Serious: Yes (Other)
  Sender: FDA-Public Use
  Company Number: US-ORGANON-O2212USA001469

PATIENT
  Sex: Female
  Weight: 68.39 kg

DRUGS (3)
  1. NEXPLANON [Suspect]
     Active Substance: ETONOGESTREL
     Dosage: 1 IMPLANT
     Route: 059
     Dates: start: 20191130, end: 20221130
  2. NEXPLANON [Suspect]
     Active Substance: ETONOGESTREL
     Dosage: 1 IMPLANT, LEFT UPPER ARM,  68 MG EVERY 3 YEARS
     Route: 059
     Dates: start: 20221130, end: 20221208
  3. NEXPLANON [Suspect]
     Active Substance: ETONOGESTREL
     Dosage: 1 IMPLANT IN THE OTHER ARM
     Route: 059
     Dates: start: 20221212

REACTIONS (6)
  - Device expulsion [Recovered/Resolved]
  - Impaired healing [Unknown]
  - Implant site scar [Unknown]
  - Implant site fibrosis [Unknown]
  - Device placement issue [Not Recovered/Not Resolved]
  - Complication of device removal [Recovered/Resolved]

NARRATIVE: CASE EVENT DATE: 20220101
